FAERS Safety Report 11158741 (Version 1)
Quarter: 2015Q2

REPORT INFORMATION
  Report Type: Spontaneous
  Country: US (occurrence: US)
  Receive Date: 20150603
  Receipt Date: 20150603
  Transmission Date: 20150821
  Serious: No
  Sender: FDA-Public Use
  Company Number: US-PFIZER INC-2015184001

PATIENT
  Sex: Female

DRUGS (1)
  1. XANAX [Suspect]
     Active Substance: ALPRAZOLAM
     Indication: ABDOMINAL PAIN UPPER
     Dosage: UNK

REACTIONS (3)
  - Heart rate increased [Unknown]
  - Insomnia [Unknown]
  - Anxiety [Unknown]
